FAERS Safety Report 5837870-6 (Version None)
Quarter: 2008Q3

REPORT INFORMATION
  Report Type: 
  Country: None (occurrence: None)
  Receive Date: 20080808
  Receipt Date: 20080328
  Transmission Date: 20090109
  Serious: No
  Sender: FDA-Public Use
  Company Number: A0718100A

PATIENT
  Age: 61 Year
  Sex: Female

DRUGS (3)
  1. PAXIL CR [Suspect]
     Indication: PANIC DISORDER
     Dosage: 20MG PER DAY
     Route: 048
     Dates: start: 19970101
  2. TOPROL-XL [Concomitant]
  3. LIPITOR [Concomitant]

REACTIONS (2)
  - ADVERSE EVENT [None]
  - OBSESSIVE-COMPULSIVE DISORDER [None]
